FAERS Safety Report 8554384-3 (Version None)
Quarter: 2012Q3

REPORT INFORMATION
  Report Type: 
  Country: None (occurrence: None)
  Receive Date: 20120731
  Receipt Date: 20120723
  Transmission Date: 20120928
  Serious: Yes (Other)
  Sender: FDA-Public Use
  Company Number: US-009507513-1207USA009705

PATIENT

DRUGS (5)
  1. PRAVACHOL [Suspect]
  2. ZOCOR [Suspect]
     Route: 048
  3. XANAX [Concomitant]
  4. MEVACOR [Suspect]
     Route: 048
  5. NIACIN [Suspect]

REACTIONS (3)
  - HOT FLUSH [None]
  - DRUG INEFFECTIVE [None]
  - BURNING SENSATION [None]
